FAERS Safety Report 6538108-7 (Version None)
Quarter: 2010Q1

REPORT INFORMATION
  Report Type: 
  Country: None (occurrence: None)
  Receive Date: 20100111
  Receipt Date: 20091230
  Transmission Date: 20100710
  Serious: Yes (Hospitalization, Other)
  Sender: FDA-Public Use
  Company Number: 2009AL007565

PATIENT
  Age: 60 Year
  Sex: Female

DRUGS (4)
  1. FEVERALL [Suspect]
     Indication: ANALGESIC THERAPY
     Dosage: 1 G;QD;PO
     Route: 048
  2. DABIGATRAN ETEXILATE [Concomitant]
  3. CODEINE [Concomitant]
  4. LEVOTHYROXINE SODIUM [Concomitant]

REACTIONS (2)
  - BLISTER [None]
  - WOUND [None]
